FAERS Safety Report 10180093 (Version 2)
Quarter: 2014Q4

REPORT INFORMATION
  Report Type: Report from Study
  Country: US (occurrence: US)
  Receive Date: 20140519
  Receipt Date: 20141128
  Transmission Date: 20150528
  Serious: Yes (Other)
  Sender: FDA-Public Use
  Company Number: US-ABBVIE-14P-163-1236134-00

PATIENT
  Sex: Male
  Weight: 86.26 kg

DRUGS (13)
  1. SUTENT [Interacting]
     Active Substance: SUNITINIB MALATE
     Route: 065
     Dates: start: 201003, end: 201410
  2. DILTIAZEM [Concomitant]
     Active Substance: DILTIAZEM
     Indication: HYPERTENSION
  3. VITAMIN B12 [Concomitant]
     Active Substance: CYANOCOBALAMIN
     Indication: PRODUCT USED FOR UNKNOWN INDICATION
  4. HUMIRA [Interacting]
     Active Substance: ADALIMUMAB
     Indication: PSORIATIC ARTHROPATHY
  5. TRADJENTA [Concomitant]
     Active Substance: LINAGLIPTIN
     Indication: DIABETES MELLITUS
  6. VITAMIN D [Concomitant]
     Active Substance: CHOLECALCIFEROL
     Indication: PRODUCT USED FOR UNKNOWN INDICATION
  7. TEMAZEPAM. [Concomitant]
     Active Substance: TEMAZEPAM
     Indication: PRODUCT USED FOR UNKNOWN INDICATION
  8. HUMIRA [Suspect]
     Active Substance: ADALIMUMAB
     Indication: RHEUMATOID ARTHRITIS
     Route: 058
     Dates: start: 2009
  9. METHOTREXATE [Concomitant]
     Active Substance: METHOTREXATE
     Indication: RHEUMATOID ARTHRITIS
  10. REMICADE [Suspect]
     Active Substance: INFLIXIMAB
     Indication: PRODUCT USED FOR UNKNOWN INDICATION
     Route: 065
     Dates: start: 2000, end: 2009
  11. SUTENT [Interacting]
     Active Substance: SUNITINIB MALATE
     Indication: RENAL CANCER
     Route: 065
  12. LEVOTHYROXINE [Concomitant]
     Active Substance: LEVOTHYROXINE
     Indication: THYROID DISORDER
  13. ALLOPURINOL. [Concomitant]
     Active Substance: ALLOPURINOL
     Indication: GOUT

REACTIONS (9)
  - Renal mass [Recovered/Resolved]
  - Haematemesis [Recovered/Resolved]
  - Back pain [Recovered/Resolved]
  - Epistaxis [Unknown]
  - Oesophageal haemorrhage [Recovered/Resolved]
  - Drug interaction [Unknown]
  - Tumour rupture [Recovered/Resolved]
  - Renal cancer metastatic [Unknown]
  - Renal cancer [Recovered/Resolved]

NARRATIVE: CASE EVENT DATE: 2009
